FAERS Safety Report 9003940 (Version 4)
Quarter: 2013Q3

REPORT INFORMATION
  Report Type: Spontaneous
  Country: GB (occurrence: GB)
  Receive Date: 20130108
  Receipt Date: 20130802
  Transmission Date: 20140515
  Serious: Yes (Other)
  Sender: FDA-Public Use
  Company Number: GB-GLAXOSMITHKLINE-B0856485A

PATIENT
  Sex: Male

DRUGS (2)
  1. BELIMUMAB [Suspect]
     Indication: SYSTEMIC LUPUS ERYTHEMATOSUS
     Route: 065
  2. STEROIDS [Concomitant]

REACTIONS (3)
  - Haemolytic anaemia [Recovering/Resolving]
  - Renal impairment [Unknown]
  - Proteinuria [Unknown]
